FAERS Safety Report 7652362-X (Version None)
Quarter: 2011Q3

REPORT INFORMATION
  Report Type: 
  Country: None (occurrence: None)
  Receive Date: 20110803
  Receipt Date: 20081105
  Transmission Date: 20111222
  Serious: Yes (Death, Disabling, Other)
  Sender: FDA-Public Use
  Company Number: US-BAYER-200836004NA

PATIENT
  Age: 55 Year
  Sex: Male
  Weight: 96.364 kg

DRUGS (41)
  1. EPOGEN [Concomitant]
  2. HEPARIN [Concomitant]
     Indication: DIALYSIS
  3. ROCEPHIN [Concomitant]
     Indication: PNEUMONIA
     Dosage: UNK
     Dates: start: 20061001, end: 20061001
  4. ACETYLSALICYLIC ACID SRT [Concomitant]
     Dosage: 81MG
  5. CLONIDINE [Concomitant]
  6. RENAGEL [Concomitant]
     Dosage: 4800 MG / THREE TIMES A DAY WITH MEALS
     Route: 048
  7. VENOFER [Concomitant]
     Indication: DIALYSIS
     Dosage: 100 MG W/ DIALYSIS MWF
     Route: 042
  8. CAPOTEN [Concomitant]
     Dosage: 6.25MG / EVERY 8 HOURS
     Route: 048
  9. PREDNISONE [Concomitant]
     Dosage: 5 MG -1.5
     Route: 048
  10. AVALIDE [Concomitant]
  11. SYNTHROID [Concomitant]
  12. LOPRESSOR [Concomitant]
     Dosage: 50MG / TWICE A DAY
     Route: 048
  13. ARAVA [Concomitant]
  14. CIDOFOVIR [Concomitant]
     Indication: CYTOMEGALOVIRUS TEST POSITIVE
     Dosage: 24 MG
     Route: 042
     Dates: start: 20030101
  15. SENSIPAR [Concomitant]
     Route: 048
  16. CARDURA [Concomitant]
     Dosage: 8MG / EVERY MORNING
     Route: 048
  17. ZITHROMAX [Concomitant]
     Indication: PNEUMONIA
     Dosage: UNK
     Dates: start: 20061001, end: 20061001
  18. CONTRAST MEDIA [Suspect]
     Indication: ARTERIOGRAM
     Dosage: UNK
     Dates: start: 20010507, end: 20010507
  19. MAGNEVIST [Suspect]
     Indication: ANGIOGRAM
     Dosage: 2OML
     Dates: start: 20060518, end: 20060518
  20. TIAZAC [Concomitant]
  21. BACTRIM [Concomitant]
  22. LASIX [Concomitant]
  23. KAYEXALATE [Concomitant]
     Indication: HYPERKALAEMIA
     Dosage: 30ML
     Dates: start: 20060715, end: 20060715
  24. COUMADIN [Concomitant]
     Dosage: 3MG / EVERY DAY 5MG / EVERY DAY AT 1700
     Route: 048
  25. EPOETIN NOS [Concomitant]
     Indication: DIALYSIS
     Dosage: 20,000 UNITS / EVERY MWF 40,000 UNITS / EVERY WEEK
  26. MAGNEVIST [Suspect]
     Indication: NUCLEAR MAGNETIC RESONANCE IMAGING ABDOMINAL
     Dosage: 30ML
     Dates: start: 20060713, end: 20060713
  27. MAGNEVIST [Suspect]
     Dosage: 20ML
     Dates: start: 20061017, end: 20061017
  28. LISINOPRIL [Concomitant]
     Dosage: 40MG / EVERY DAY 40MG / TWICE A DAY
     Route: 048
  29. ARANESP [Concomitant]
     Dosage: 80 MCG / EVERY 2 WEEKS
  30. CELLCEPT [Concomitant]
     Dosage: 500 MG - 2 (1000MG) BID
     Route: 048
  31. PRINIVIL [Concomitant]
  32. RENAGEL [Concomitant]
     Dosage: WITH MEALS; AS OF 05-JUN-2006
     Route: 048
  33. DILTIAZEM [Concomitant]
     Dosage: 180 MG / EVERY DAY
     Route: 048
  34. PROGRAF [Concomitant]
     Dosage: 2 EACH AM AND 1 QHS
  35. SODIUM BICARBONATE [Concomitant]
  36. BENICAR [Concomitant]
     Dosage: 40MG / 1 TABLET DAILY
     Route: 048
  37. VANCOMYCIN [Concomitant]
     Dosage: UNK
     Dates: start: 20060308
  38. GADOLINIUM IN UNSPECIFIED DRUG [Suspect]
     Indication: NUCLEAR MAGNETIC RESONANCE IMAGING
     Dosage: UNK
     Dates: start: 20051102, end: 20051102
  39. CONTRAST MEDIA [Suspect]
     Indication: VENOGRAM
     Dosage: UNK
     Dates: start: 20010502, end: 20010502
  40. CONTRAST MEDIA [Suspect]
     Indication: FISTULOGRAM
     Dosage: UNK
     Dates: start: 20060824, end: 20060824
  41. CONTRAST MEDIA [Suspect]
     Indication: ANGIOPLASTY
     Dosage: UNK
     Dates: start: 20061213, end: 20061213

REACTIONS (25)
  - GENERAL PHYSICAL HEALTH DETERIORATION [None]
  - SKIN TIGHTNESS [None]
  - MUSCULOSKELETAL STIFFNESS [None]
  - SCAR [None]
  - FIBROSIS [None]
  - PARAESTHESIA [None]
  - SKIN INDURATION [None]
  - SKIN HYPERTROPHY [None]
  - OEDEMA PERIPHERAL [None]
  - JOINT RANGE OF MOTION DECREASED [None]
  - MOTOR DYSFUNCTION [None]
  - ANHEDONIA [None]
  - DEPRESSION [None]
  - PAIN [None]
  - ASTHENIA [None]
  - GAIT DISTURBANCE [None]
  - INJURY [None]
  - NEPHROGENIC SYSTEMIC FIBROSIS [None]
  - SENSORY LOSS [None]
  - MUSCLE TIGHTNESS [None]
  - SKIN DISCOLOURATION [None]
  - ANXIETY [None]
  - DRY SKIN [None]
  - MOBILITY DECREASED [None]
  - PRURITUS [None]
